FAERS Safety Report 19394376 (Version 1)
Quarter: 2021Q2

REPORT INFORMATION
  Report Type: Report from Study
  Country: ES (occurrence: ES)
  Receive Date: 20210609
  Receipt Date: 20210609
  Transmission Date: 20210717
  Serious: Yes (Other)
  Sender: FDA-Public Use
  Company Number: ES-GW PHARMA-202001ESGW00372

PATIENT

DRUGS (10)
  1. EPIDIOLEX [Suspect]
     Active Substance: CANNABIDIOL
     Indication: LENNOX-GASTAUT SYNDROME
     Dosage: 20 MG/KG, 800 MILLIGRAM, QD
     Route: 048
     Dates: start: 20190403, end: 20190502
  2. EPIDIOLEX [Suspect]
     Active Substance: CANNABIDIOL
     Dosage: 10 MG/KG, 400 MILLIGRAM QD
     Route: 048
     Dates: start: 20190503, end: 20190528
  3. VALPROIC ACID. [Suspect]
     Active Substance: VALPROIC ACID
     Indication: PRODUCT USED FOR UNKNOWN INDICATION
     Dosage: 3.4 MILLILITER, TID
     Route: 065
     Dates: start: 20190503, end: 20190704
  4. LAMOTRIGINE. [Concomitant]
     Active Substance: LAMOTRIGINE
     Indication: PRODUCT USED FOR UNKNOWN INDICATION
     Dosage: 60 MILLIGRAM, BID
     Route: 065
  5. VALPROIC ACID. [Suspect]
     Active Substance: VALPROIC ACID
     Dosage: 3 MILLILITER, TID
     Route: 065
     Dates: start: 20190705, end: 20190723
  6. VALPROIC ACID. [Suspect]
     Active Substance: VALPROIC ACID
     Dosage: 0.7 MILLILITER, TID
     Route: 065
     Dates: start: 20190801, end: 20190809
  7. VALPROIC ACID. [Suspect]
     Active Substance: VALPROIC ACID
     Dosage: 2.5 MILLILITER, TID
     Route: 065
     Dates: start: 20190724, end: 20190731
  8. CLOBAZAM. [Concomitant]
     Active Substance: CLOBAZAM
     Indication: PRODUCT USED FOR UNKNOWN INDICATION
     Dosage: 35 MILLIGRAM, QD (5MG?10MG?20MG)
     Route: 065
  9. EPIDIOLEX [Suspect]
     Active Substance: CANNABIDIOL
     Dosage: 15 MG/KG, 600 MILLIGRAM QD
     Route: 048
     Dates: start: 20190529, end: 20190808
  10. EPIDIOLEX [Suspect]
     Active Substance: CANNABIDIOL
     Dosage: 20 MG/KG, 800 MG QD
     Route: 048
     Dates: start: 20190809

REACTIONS (7)
  - Epistaxis [Recovered/Resolved]
  - Drug interaction [Recovered/Resolved]
  - Anticonvulsant drug level increased [Recovered/Resolved]
  - Seizure [Recovered/Resolved]
  - Purpura [Recovered/Resolved]
  - Thrombocytopenia [Recovered/Resolved]
  - Contusion [Recovered/Resolved]

NARRATIVE: CASE EVENT DATE: 20190628
